FAERS Safety Report 23019301 (Version 1)
Quarter: 2023Q4

REPORT INFORMATION
  Report Type: Spontaneous
  Country: US (occurrence: US)
  Receive Date: 20231003
  Receipt Date: 20231003
  Transmission Date: 20240110
  Serious: No
  Sender: FDA-Public Use
  Company Number: US-AMGEN-USASP2023172782

PATIENT
  Sex: Female

DRUGS (5)
  1. AIMOVIG [Suspect]
     Active Substance: ERENUMAB-AOOE
     Indication: Migraine
     Dosage: UNK UNK, QMO
     Route: 065
  2. NURTEC ODT [Concomitant]
     Active Substance: RIMEGEPANT SULFATE
     Indication: Hemiplegic migraine
     Dosage: UNK UNK, QD
  3. IBUPROFEN [Concomitant]
     Active Substance: IBUPROFEN
     Indication: Migraine
     Dosage: UNK
  4. QULIPTA [Concomitant]
     Active Substance: ATOGEPANT
  5. MAXALT [Concomitant]
     Active Substance: RIZATRIPTAN BENZOATE
     Indication: Migraine with aura
     Dosage: 10 MILLIGRAM

REACTIONS (4)
  - COVID-19 [Unknown]
  - Therapeutic product effect incomplete [Unknown]
  - Migraine [Unknown]
  - Muscular weakness [Unknown]
